FAERS Safety Report 13665852 (Version 1)
Quarter: 2017Q2

REPORT INFORMATION
  Report Type: Spontaneous
  Country: CA (occurrence: CA)
  Receive Date: 20170619
  Receipt Date: 20170619
  Transmission Date: 20170830
  Serious: Yes (Hospitalization)
  Sender: FDA-Public Use
  Company Number: CA-BAUSCH-BL-2017-018689

PATIENT
  Sex: Male

DRUGS (3)
  1. EYLEA [Suspect]
     Active Substance: AFLIBERCEPT
     Indication: PRODUCT USED FOR UNKNOWN INDICATION
     Route: 047
  2. TETRACAINE. [Suspect]
     Active Substance: TETRACAINE
     Indication: PRODUCT USED FOR UNKNOWN INDICATION
     Route: 047
  3. EYLEA [Suspect]
     Active Substance: AFLIBERCEPT
     Route: 047

REACTIONS (3)
  - Eye pain [Recovering/Resolving]
  - Corneal abrasion [Recovering/Resolving]
  - Foreign body sensation in eyes [Recovering/Resolving]
